FAERS Safety Report 12134818 (Version 7)
Quarter: 2017Q4

REPORT INFORMATION
  Report Type: Spontaneous
  Country: JP (occurrence: JP)
  Receive Date: 20160301
  Receipt Date: 20171031
  Transmission Date: 20180320
  Serious: Yes (Death, Hospitalization, Other)
  Sender: FDA-Public Use
  Company Number: JP-GILEAD-2016-0199975

PATIENT
  Age: 81 Year
  Sex: Female
  Weight: 47 kg

DRUGS (12)
  1. URSO [Concomitant]
     Active Substance: URSODIOL
     Dosage: 600 MG, UNK
     Route: 048
  2. SENNA [Suspect]
     Active Substance: SENNA LEAF\SENNOSIDES\SENNOSIDES A AND B
     Indication: CONSTIPATION
     Dosage: 1 G, PRN
     Route: 048
     Dates: start: 20151222
  3. SPIRONOLACTONE. [Suspect]
     Active Substance: SPIRONOLACTONE
     Indication: OEDEMA
     Dosage: 25 MG, QD
     Route: 048
     Dates: start: 20151208
  4. ONEALFA [Concomitant]
     Active Substance: ALFACALCIDOL
     Dosage: 0.5 UG, QD
     Route: 048
  5. HARVONI [Suspect]
     Active Substance: LEDIPASVIR\SOFOSBUVIR
     Indication: HEPATIC CIRRHOSIS
     Dosage: 1 DF, QD
     Route: 048
     Dates: start: 20151125, end: 20160217
  6. PRONON [Concomitant]
     Active Substance: PROPAFENONE
     Dosage: 150 MG, QD
     Route: 065
  7. AMLODIPINE                         /00972402/ [Concomitant]
     Active Substance: AMLODIPINE BESYLATE
     Dosage: 25 MG, QD
     Route: 048
  8. JUVELA                             /00110502/ [Concomitant]
     Dosage: 50 MG, QD
     Route: 048
  9. BROTIZOLAM [Suspect]
     Active Substance: BROTIZOLAM
     Indication: INSOMNIA
     Dosage: 0.25 MG, PRN
     Route: 048
     Dates: start: 20151222
  10. ITOROL [Concomitant]
     Active Substance: ISOSORBIDE MONONITRATE
     Dosage: 20 MG, QD
     Route: 065
  11. LIVACT                             /07401301/ [Concomitant]
     Active Substance: AMINO ACIDS
     Dosage: 3 DF, UNK
     Route: 048
  12. SODIUM PICOSULFATE [Concomitant]
     Active Substance: SODIUM PICOSULFATE
     Indication: CONSTIPATION
     Dosage: UNK UNK, PRN
     Route: 048

REACTIONS (9)
  - Subarachnoid haemorrhage [Fatal]
  - Meningitis [Unknown]
  - External hydrocephalus [Unknown]
  - Oedema [Unknown]
  - Ascites [Unknown]
  - Acute respiratory distress syndrome [Unknown]
  - Carotid aneurysm rupture [Fatal]
  - Pneumonia [Unknown]
  - Atelectasis [Unknown]

NARRATIVE: CASE EVENT DATE: 20160218
